FAERS Safety Report 10204077 (Version 3)
Quarter: 2014Q4

REPORT INFORMATION
  Report Type: Spontaneous
  Country: BE (occurrence: BE)
  Receive Date: 20140529
  Receipt Date: 20141024
  Transmission Date: 20150528
  Serious: Yes (Other)
  Sender: FDA-Public Use
  Company Number: BE-AMGEN-BELSP2014038635

PATIENT
  Age: 69 Year
  Sex: Female

DRUGS (8)
  1. IRESSA [Concomitant]
     Active Substance: GEFITINIB
     Dosage: 250 MG, UNK
     Route: 048
  2. ZOMETA [Concomitant]
     Active Substance: ZOLEDRONIC ACID
  3. AMLOR [Concomitant]
     Active Substance: AMLODIPINE BESYLATE
     Dosage: 5 MG, UNK
     Route: 048
  4. XGEVA [Suspect]
     Active Substance: DENOSUMAB
     Indication: LUNG NEOPLASM MALIGNANT
     Dosage: 120 MG, Q4WK
     Route: 058
     Dates: start: 201301, end: 201310
  5. BETAHISTINE [Concomitant]
     Active Substance: BETAHISTINE
     Dosage: 16 MG, UNK
     Route: 048
  6. PANTOMED                           /00178901/ [Concomitant]
     Dosage: 40 MG, UNK
     Route: 048
  7. INUVAIR [Concomitant]
     Active Substance: BECLOMETHASONE DIPROPIONATE\FORMOTEROL FUMARATE
  8. DUOVENT [Concomitant]
     Active Substance: FENOTEROL HYDROBROMIDE

REACTIONS (1)
  - Osteonecrosis of jaw [Not Recovered/Not Resolved]

NARRATIVE: CASE EVENT DATE: 20140106
